FAERS Safety Report 21137161 (Version 1)
Quarter: 2022Q3

REPORT INFORMATION
  Report Type: Spontaneous
  Country: CA (occurrence: None)
  Receive Date: 20220727
  Receipt Date: 20220727
  Transmission Date: 20221027
  Serious: Yes (Hospitalization)
  Sender: FDA-Public Use
  Company Number: CA-ROCHE-3146007

PATIENT
  Age: 90 Year
  Sex: Male

DRUGS (1)
  1. RITUXIMAB [Suspect]
     Active Substance: RITUXIMAB
     Indication: Mucous membrane pemphigoid
     Dosage: DRUG DOSE FIRST ADMINISTERED IS 1.0 GRAMTHERAPY DURATION + THERAPY DURATION UNITS IS NOT PROVIDED
     Route: 041

REACTIONS (2)
  - COVID-19 pneumonia [Unknown]
  - Off label use [Unknown]
